FAERS Safety Report 6691508-7 (Version None)
Quarter: 2010Q2

REPORT INFORMATION
  Report Type: 
  Country: None (occurrence: None)
  Receive Date: 20100422
  Receipt Date: 20100414
  Transmission Date: 20101027
  Serious: Yes (Hospitalization, Other)
  Sender: FDA-Public Use
  Company Number: US-BAYER-200940518NA

PATIENT
  Age: 54 Year
  Sex: Male

DRUGS (3)
  1. NEXAVAR [Suspect]
     Indication: RENAL CELL CARCINOMA
     Dosage: TOTAL DAILY DOSE: 800 MG  UNIT DOSE: 200 MG
     Route: 048
     Dates: start: 20091101
  2. FENTANYL [Concomitant]
     Route: 061
  3. STEROIDS [Concomitant]
     Dates: start: 20090701

REACTIONS (23)
  - ABDOMINAL DISTENSION [None]
  - ABDOMINAL PAIN UPPER [None]
  - ANAEMIA [None]
  - APPLICATION SITE BLEEDING [None]
  - BACTERIAL RHINITIS [None]
  - BLOOD PRESSURE DECREASED [None]
  - CONSTIPATION [None]
  - DYSPHONIA [None]
  - EPISTAXIS [None]
  - ERYTHEMA [None]
  - FALL [None]
  - FATIGUE [None]
  - GASTROINTESTINAL SOUNDS ABNORMAL [None]
  - GLOSSODYNIA [None]
  - IMPAIRED HEALING [None]
  - INCREASED TENDENCY TO BRUISE [None]
  - ORAL CANDIDIASIS [None]
  - OROPHARYNGEAL PAIN [None]
  - PETECHIAE [None]
  - PURULENT DISCHARGE [None]
  - SINUSITIS [None]
  - SWOLLEN TONGUE [None]
  - TREMOR [None]
